FAERS Safety Report 5509657-5 (Version None)
Quarter: 2007Q4

REPORT INFORMATION
  Report Type: 
  Country: None (occurrence: None)
  Receive Date: 20071108
  Receipt Date: 20071105
  Transmission Date: 20080405
  Serious: Yes (Death)
  Sender: FDA-Public Use
  Company Number: PHHO2007BR18115

PATIENT
  Age: 76 Year
  Sex: Male

DRUGS (1)
  1. FORASEQ [Suspect]
     Dosage: 12 / 400 MCG

REACTIONS (1)
  - EMPHYSEMA [None]
